FAERS Safety Report 7175921-X (Version None)
Quarter: 2010Q4

REPORT INFORMATION
  Report Type: 
  Country: None (occurrence: None)
  Receive Date: 20101220
  Receipt Date: 20101213
  Transmission Date: 20110411
  Serious: Yes (Death, Hospitalization)
  Sender: FDA-Public Use
  Company Number: US-BIOGENIDEC-2010BI038772

PATIENT
  Age: 66 Year
  Sex: Female

DRUGS (6)
  1. TYSABRI [Suspect]
     Indication: MULTIPLE SCLEROSIS
     Route: 042
     Dates: start: 20101008, end: 20101008
  2. DETROL LA [Concomitant]
     Indication: URINARY TRACT DISORDER
     Route: 048
  3. PERI-COLACE [Concomitant]
     Indication: CONSTIPATION
  4. LYRICA [Concomitant]
     Indication: PRODUCT USED FOR UNKNOWN INDICATION
     Route: 048
  5. BACLOFEN [Concomitant]
     Indication: PRODUCT USED FOR UNKNOWN INDICATION
     Route: 048
  6. MIRALAX [Concomitant]
     Indication: PRODUCT USED FOR UNKNOWN INDICATION
     Route: 048

REACTIONS (17)
  - ATELECTASIS [None]
  - BLOOD PH DECREASED [None]
  - CARDIOMEGALY [None]
  - DEEP VEIN THROMBOSIS [None]
  - ESCHERICHIA INFECTION [None]
  - GENERAL PHYSICAL HEALTH DETERIORATION [None]
  - HAEMOLYTIC ANAEMIA [None]
  - HEPATITIS [None]
  - INTERNATIONAL NORMALISED RATIO DECREASED [None]
  - MORGANELLA INFECTION [None]
  - PLATELET COUNT DECREASED [None]
  - PROTEUS INFECTION [None]
  - SEPTIC SHOCK [None]
  - STREPTOCOCCAL INFECTION [None]
  - UNRESPONSIVE TO STIMULI [None]
  - URINARY TRACT INFECTION [None]
  - UROSEPSIS [None]
